FAERS Safety Report 18090762 (Version 2)
Quarter: 2020Q3

REPORT INFORMATION
  Report Type: Report from Study
  Country: None (occurrence: US)
  Receive Date: 20200729
  Receipt Date: 20200930
  Transmission Date: 20201103
  Serious: Yes (Hospitalization, Other)
  Sender: FDA-Public Use
  Company Number: US-ABBVIE-20K-163-3474817-00

PATIENT
  Sex: Male
  Weight: 93.52 kg

DRUGS (2)
  1. HUMIRA [Suspect]
     Active Substance: ADALIMUMAB
     Route: 058
     Dates: start: 201912
  2. HUMIRA [Suspect]
     Active Substance: ADALIMUMAB
     Indication: RHEUMATOID ARTHRITIS
     Route: 058
     Dates: start: 2015

REACTIONS (4)
  - Cartilage atrophy [Recovered/Resolved]
  - Osteoarthritis [Unknown]
  - Allergy to metals [Unknown]
  - Implant site oedema [Unknown]

NARRATIVE: CASE EVENT DATE: 2015
